FAERS Safety Report 21859266 (Version 1)
Quarter: 2023Q1

REPORT INFORMATION
  Report Type: Spontaneous
  Country: JP (occurrence: JP)
  Receive Date: 20230113
  Receipt Date: 20230113
  Transmission Date: 20230418
  Serious: Yes (Death, Hospitalization, Other)
  Sender: FDA-Public Use
  Company Number: JP-ASTELLAS-2022JP014477

PATIENT
  Age: 71 Year
  Sex: Male
  Weight: 53.3 kg

DRUGS (4)
  1. PADCEV [Suspect]
     Active Substance: ENFORTUMAB VEDOTIN-EJFV
     Indication: Bladder cancer
     Route: 065
     Dates: start: 20220527
  2. PADCEV [Suspect]
     Active Substance: ENFORTUMAB VEDOTIN-EJFV
     Route: 065
     Dates: start: 20220715
  3. PADCEV [Suspect]
     Active Substance: ENFORTUMAB VEDOTIN-EJFV
     Route: 065
     Dates: start: 20220824
  4. CEFEPIME HYDROCHLORIDE [Suspect]
     Active Substance: CEFEPIME HYDROCHLORIDE
     Indication: Febrile neutropenia
     Route: 065
     Dates: start: 20220913

REACTIONS (6)
  - Nutritional condition abnormal [Fatal]
  - Circulatory collapse [Fatal]
  - Toxic epidermal necrolysis [Fatal]
  - Stevens-Johnson syndrome [Unknown]
  - Skin disorder [Unknown]
  - Pruritus [Unknown]

NARRATIVE: CASE EVENT DATE: 20220915
